FAERS Safety Report 9925017 (Version 1)
Quarter: 2014Q1

REPORT INFORMATION
  Report Type: Spontaneous
  Country: US (occurrence: None)
  Receive Date: 20140225
  Receipt Date: 20140225
  Transmission Date: 20141002
  Serious: Yes (Disabling)
  Sender: FDA-Public Use
  Company Number: None

PATIENT
  Age: 55 Year
  Sex: Female
  Weight: 72.58 kg

DRUGS (1)
  1. IBUPROFEN [Suspect]
     Indication: ARTHRALGIA
     Dosage: 1 PILL ONCE DAILY
     Route: 048
     Dates: start: 20140224

REACTIONS (7)
  - Influenza like illness [None]
  - Arthralgia [None]
  - Back pain [None]
  - Oropharyngeal pain [None]
  - Abdominal discomfort [None]
  - Asthma [None]
  - Discomfort [None]
